FAERS Safety Report 6814594-X (Version None)
Quarter: 2010Q2

REPORT INFORMATION
  Report Type: 
  Country: None (occurrence: None)
  Receive Date: 20100629
  Receipt Date: 20090703
  Transmission Date: 20101027
  Serious: Yes (Other)
  Sender: FDA-Public Use
  Company Number: 2009AP002703

PATIENT
  Age: 56 Year
  Sex: Male

DRUGS (8)
  1. PRAVASTATIN SODIUM [Suspect]
     Dosage: 10 MG;QD; PO
     Route: 048
     Dates: start: 20080201, end: 20080305
  2. SIMVASTATIN [Suspect]
     Dosage: 10 MG;QD; PO
     Route: 048
     Dates: start: 20071207, end: 20080201
  3. EZETIMIBE [Suspect]
     Dosage: 10 MG;QD;; PO
     Route: 048
     Dates: start: 20080305, end: 20090107
  4. SILDENAFIL CITRATE [Suspect]
     Indication: ERECTILE DYSFUNCTION
     Dosage: 100 MG; PO
     Route: 048
     Dates: start: 20010307
  5. ASPIRIN [Concomitant]
  6. TROSPIUM (TROSPIUM) [Concomitant]
  7. SIMVASTATIN [Concomitant]
  8. PRAVASTATIN [Concomitant]

REACTIONS (3)
  - BLOOD PRESSURE ABNORMAL [None]
  - DRUG INEFFECTIVE [None]
  - DRUG INTERACTION [None]
